FAERS Safety Report 13929379 (Version 1)
Quarter: 2017Q3

REPORT INFORMATION
  Report Type: Spontaneous
  Country: US (occurrence: US)
  Receive Date: 20170901
  Receipt Date: 20170901
  Transmission Date: 20171127
  Serious: Yes (Other)
  Sender: FDA-Public Use
  Company Number: US-FRESENIUS KABI-FK201707318

PATIENT
  Age: 48 Year
  Sex: Female
  Weight: 90.4 kg

DRUGS (8)
  1. INCB024360 [Suspect]
     Active Substance: EPACADOSTAT
     Indication: SALIVARY GLAND CANCER
     Route: 048
     Dates: start: 20170619, end: 20170725
  2. CARBOPLATIN (MANUFACTURER UNKNOWN) [Suspect]
     Active Substance: CARBOPLATIN
     Indication: SALIVARY GLAND CANCER
     Route: 042
     Dates: start: 20170619
  3. INCB024360 [Suspect]
     Active Substance: EPACADOSTAT
     Route: 048
     Dates: start: 20170804
  4. PEMBROLIZUMAB. [Suspect]
     Active Substance: PEMBROLIZUMAB
     Route: 042
     Dates: start: 20170804
  5. PACLITAXEL. [Suspect]
     Active Substance: PACLITAXEL
     Indication: SALIVARY GLAND CANCER
     Route: 042
     Dates: start: 20170619
  6. PEMBROLIZUMAB. [Suspect]
     Active Substance: PEMBROLIZUMAB
     Indication: SALIVARY GLAND CANCER
     Route: 042
     Dates: start: 20170619
  7. CARBOPLATIN (MANUFACTURER UNKNOWN) [Suspect]
     Active Substance: CARBOPLATIN
     Route: 042
     Dates: start: 20170804
  8. PACLITAXEL. [Suspect]
     Active Substance: PACLITAXEL
     Route: 042
     Dates: start: 20170804

REACTIONS (3)
  - Neutrophil count decreased [Unknown]
  - White blood cell count decreased [Unknown]
  - Platelet count decreased [Unknown]

NARRATIVE: CASE EVENT DATE: 20170725
